FAERS Safety Report 9258087 (Version 1)
Quarter: 2013Q2

REPORT INFORMATION
  Report Type: Spontaneous
  Country: US (occurrence: US)
  Receive Date: 20130426
  Receipt Date: 20130426
  Transmission Date: 20140414
  Serious: Yes (Hospitalization, Other)
  Sender: FDA-Public Use
  Company Number: US-SANOFI-AVENTIS-2013SA042740

PATIENT
  Age: 65 Year
  Sex: Female

DRUGS (1)
  1. LANTUS [Suspect]
     Indication: DIABETES MELLITUS
     Dosage: 20 UNITS IN AM AND 20 IN PM DOSE:20 UNIT(S)
     Route: 051
     Dates: start: 2011

REACTIONS (4)
  - Cardiac disorder [Unknown]
  - Visual impairment [Unknown]
  - Blood pressure abnormal [Unknown]
  - Blood glucose increased [Unknown]
